FAERS Safety Report 23466398 (Version 1)
Quarter: 2024Q1

REPORT INFORMATION
  Report Type: Spontaneous
  Country: US (occurrence: None)
  Receive Date: 20240131
  Receipt Date: 20240131
  Transmission Date: 20240410
  Serious: Yes (Disabling, Other)
  Sender: FDA-Public Use
  Company Number: None

PATIENT
  Age: 67 Year
  Sex: Female
  Weight: 57.6 kg

DRUGS (2)
  1. PAXLOVID [Suspect]
     Active Substance: NIRMATRELVIR\RITONAVIR
     Indication: SARS-CoV-2 test positive
     Dosage: OTHER QUANTITY : 3 TABLET(S);?FREQUENCY : TWICE A DAY;?
     Route: 048
     Dates: start: 20240110, end: 20240115
  2. ASPIRIN [Concomitant]
     Active Substance: ASPIRIN

REACTIONS (5)
  - COVID-19 [None]
  - COVID-19 [None]
  - Eye disorder [None]
  - Aphonia [None]
  - Culture urine positive [None]

NARRATIVE: CASE EVENT DATE: 20240113
